FAERS Safety Report 8217661-1 (Version None)
Quarter: 2012Q1

REPORT INFORMATION
  Report Type: 
  Country: None (occurrence: None)
  Receive Date: 20120315
  Receipt Date: 20120305
  Transmission Date: 20120608
  Serious: Yes (Hospitalization)
  Sender: FDA-Public Use
  Company Number: 2012MA003218

PATIENT
  Age: 75 Year
  Sex: Male

DRUGS (11)
  1. FUROSEMIDE [Concomitant]
  2. VERAPAMIL [Concomitant]
  3. SPIRIVA [Concomitant]
  4. CARBASALAATCALCIUM CARDIO [Concomitant]
  5. FEVERALL [Suspect]
     Indication: ABDOMINAL PAIN
     Dates: start: 20111219, end: 20111223
  6. MOVICOLON [Concomitant]
  7. NEBIVOLOL HCL [Concomitant]
  8. PENETHICILLIN [Concomitant]
  9. CIPROFLOXACIN [Suspect]
     Indication: DIVERTICULITIS
     Dosage: 500 MG;BID
     Dates: start: 20111222, end: 20111223
  10. SIMVASTATIN [Suspect]
     Indication: HYPERCHOLESTEROLAEMIA
     Dosage: 20 MG;QD
     Dates: start: 20110623, end: 20111224
  11. LANOXIN [Concomitant]

REACTIONS (1)
  - JAUNDICE CHOLESTATIC [None]
